FAERS Safety Report 10916126 (Version 2)
Quarter: 2015Q1

REPORT INFORMATION
  Report Type: Spontaneous
  Country: FR (occurrence: FR)
  Receive Date: 20150316
  Receipt Date: 20150316
  Transmission Date: 20150721
  Serious: Yes (Death, Hospitalization)
  Sender: FDA-Public Use
  Company Number: FR-B.I. PHARMACEUTICALS,INC./RIDGEFIELD-2015-BI-12715FF

PATIENT
  Age: 68 Year
  Sex: Male
  Weight: 73 kg

DRUGS (7)
  1. FUROSEMIDE. [Concomitant]
     Active Substance: FUROSEMIDE
     Indication: PRODUCT USED FOR UNKNOWN INDICATION
     Route: 065
  2. DIGOXINE [Concomitant]
     Active Substance: DIGOXIN
     Indication: PRODUCT USED FOR UNKNOWN INDICATION
     Route: 065
  3. AVODART [Concomitant]
     Active Substance: DUTASTERIDE
     Indication: PRODUCT USED FOR UNKNOWN INDICATION
     Route: 065
  4. PLAVIX [Concomitant]
     Active Substance: CLOPIDOGREL BISULFATE
     Indication: PRODUCT USED FOR UNKNOWN INDICATION
     Dosage: STRENGTH: 75
     Route: 065
  5. VESICARE [Concomitant]
     Active Substance: SOLIFENACIN SUCCINATE
     Indication: PRODUCT USED FOR UNKNOWN INDICATION
     Route: 065
  6. KLIPAL [Concomitant]
     Active Substance: ACETAMINOPHEN\CODEINE PHOSPHATE
     Indication: PRODUCT USED FOR UNKNOWN INDICATION
     Route: 065
  7. PRADAXA [Suspect]
     Active Substance: DABIGATRAN ETEXILATE MESYLATE
     Indication: ATRIAL FLUTTER
     Dosage: 220 MG
     Route: 048
     Dates: start: 2012

REACTIONS (12)
  - Rectal haemorrhage [Unknown]
  - Intestinal ischaemia [Unknown]
  - Intestinal ischaemia [Unknown]
  - Circulatory collapse [Unknown]
  - Inflammatory marker increased [Unknown]
  - Ischaemic hepatitis [Fatal]
  - Abdominal pain [Unknown]
  - Gastrointestinal necrosis [Unknown]
  - Large intestine perforation [Unknown]
  - Pneumoperitoneum [Unknown]
  - Multi-organ failure [Unknown]
  - Overdose [Unknown]

NARRATIVE: CASE EVENT DATE: 2015
